FAERS Safety Report 7768336-4 (Version None)
Quarter: 2011Q3

REPORT INFORMATION
  Report Type: 
  Country: None (occurrence: None)
  Receive Date: 20110922
  Receipt Date: 20110707
  Transmission Date: 20111222
  Serious: Yes (Other)
  Sender: FDA-Public Use
  Company Number: US-ASTRAZENECA-2011SE24591

PATIENT
  Age: 72 Year
  Sex: Female

DRUGS (14)
  1. TETRACYCLINE [Concomitant]
  2. AMOXICILLIN [Concomitant]
  3. GLIPIZIDE [Concomitant]
  4. LORAZEPAM [Concomitant]
     Dosage: I IN AM AND 2 IN PM
     Route: 048
  5. METFORMIN HCL [Concomitant]
  6. LOVASTATIN [Concomitant]
  7. ZOLPIDEM TARTRATE [Concomitant]
  8. CLONAZEPAM [Concomitant]
  9. CITALOPRAM HYDROBROMIDE [Concomitant]
  10. HYDROCODONE BITARTRATE AND ACETAMINOPHEN [Concomitant]
     Dosage: 7.5 TO 650 TAKE ONE EVERY 4 TO 6 HOURS
  11. AZITHROMYCIN [Concomitant]
     Dosage: 2 TABLET ON FIST DAY AND 1 DAILY THERE AFTER
  12. SEROQUEL [Suspect]
     Route: 048
  13. SEROQUEL [Suspect]
     Dosage: 200 MG 1 AM AND 2 PM
     Route: 048
  14. BACITRACIN [Concomitant]
     Dosage: 500 UNITS 1 FORTH INCH TO INCISION TWICE DAILY

REACTIONS (7)
  - AGITATION [None]
  - ANGER [None]
  - DEPRESSION [None]
  - LETHARGY [None]
  - SUICIDAL IDEATION [None]
  - DRUG DOSE OMISSION [None]
  - MENTAL DISORDER [None]
